FAERS Safety Report 21609885 (Version 1)
Quarter: 2022Q4

REPORT INFORMATION
  Report Type: Spontaneous
  Country: US (occurrence: None)
  Receive Date: 20221117
  Receipt Date: 20221117
  Transmission Date: 20230112
  Serious: Yes (Other)
  Sender: FDA-Public Use
  Company Number: US-LOTUS-2022-LOTUS-049467

PATIENT
  Age: 77 Year
  Sex: Female

DRUGS (1)
  1. METHOTREXATE [Suspect]
     Active Substance: METHOTREXATE
     Indication: Diffuse large B-cell lymphoma
     Dosage: 6 G/M2 FOR THE FIRST CYCLE INSTEAD OF 8 G/M2

REACTIONS (2)
  - Creatinine renal clearance decreased [Unknown]
  - Condition aggravated [Unknown]
